FAERS Safety Report 15385651 (Version 1)
Quarter: 2018Q4

REPORT INFORMATION
  Report Type: Spontaneous
  Country: DE (occurrence: DE)
  Receive Date: 20180914
  Receipt Date: 20180914
  Transmission Date: 20190204
  Serious: Yes (Other)
  Sender: FDA-Public Use
  Company Number: DE-TORRENT-00009944

PATIENT

DRUGS (1)
  1. LOSARTAN COMP. HEUMANN 50 MG/12,5 MG FILMTABLETTEN [Suspect]
     Active Substance: HYDROCHLOROTHIAZIDE\LOSARTAN POTASSIUM
     Indication: PRODUCT USED FOR UNKNOWN INDICATION
     Dosage: WITHOUT HEUNET CO-MARKETING,DIFFERENT REGISTRATION NUMBER [NUMBER NOT PROVIDED BY AMK;BATCH LC34373

REACTIONS (4)
  - Hypertension [Unknown]
  - Product substitution issue [Unknown]
  - Palpitations [Unknown]
  - Arrhythmia [Unknown]
